FAERS Safety Report 4724532-1 (Version None)
Quarter: 2005Q3

REPORT INFORMATION
  Report Type: 
  Country: None (occurrence: None)
  Receive Date: 20050720
  Receipt Date: 20050720
  Transmission Date: 20060218
  Serious: Yes (Hospitalization)
  Sender: FDA-Public Use
  Company Number: None

PATIENT
  Age: 75 Year
  Sex: Female
  Weight: 90.7194 kg

DRUGS (2)
  1. MACROBID [Suspect]
     Indication: KIDNEY INFECTION
     Dosage: 2 PER DAY
     Dates: start: 20050517, end: 20050524
  2. PREDNISONE [Concomitant]

REACTIONS (6)
  - DYSPNOEA [None]
  - ERYTHEMA [None]
  - FLUSHING [None]
  - PHARYNGEAL OEDEMA [None]
  - SPEECH DISORDER [None]
  - SWELLING FACE [None]
